FAERS Safety Report 10171574 (Version 2)
Quarter: 2014Q2

REPORT INFORMATION
  Report Type: Spontaneous
  Country: US (occurrence: US)
  Receive Date: 20140514
  Receipt Date: 20140603
  Transmission Date: 20141212
  Serious: Yes (Hospitalization)
  Sender: FDA-Public Use
  Company Number: US-PFIZER INC-2014129302

PATIENT
  Age: 38 Year
  Sex: Male
  Weight: 84 kg

DRUGS (4)
  1. VFEND [Suspect]
     Indication: PULMONARY MYCOSIS
     Dosage: 200 MG, 2X/DAY
     Dates: start: 2014
  2. VFEND [Suspect]
     Dosage: UNK
  3. TOPROL XL [Concomitant]
     Indication: HYPERTENSION
     Dosage: 25 MG, DAILY
  4. ABILIFY [Concomitant]
     Indication: DEPRESSION
     Dosage: 5 MG, UNK

REACTIONS (3)
  - Spleen disorder [Unknown]
  - Lung disorder [Unknown]
  - Blood count abnormal [Unknown]
